FAERS Safety Report 15285506 (Version 1)
Quarter: 2018Q3

REPORT INFORMATION
  Report Type: Spontaneous
  Country: US (occurrence: US)
  Receive Date: 20180816
  Receipt Date: 20180816
  Transmission Date: 20181010
  Serious: No
  Sender: FDA-Public Use
  Company Number: US-ASTRAZENECA-2018SE93133

PATIENT
  Sex: Female
  Weight: 90.7 kg

DRUGS (1)
  1. FASENRA [Suspect]
     Active Substance: BENRALIZUMAB
     Indication: ASTHMA
     Dosage: 30 MG SUBCUTANEOUS ONCE A MONTH FOR 3 DOSES AND THEN WILL BEGIN FASENRA EVERY 8 WEEKS,
     Route: 058
     Dates: start: 20180507

REACTIONS (2)
  - Dysphonia [Not Recovered/Not Resolved]
  - Alopecia [Unknown]
